FAERS Safety Report 22292586 (Version 1)
Quarter: 2023Q2

REPORT INFORMATION
  Report Type: Spontaneous
  Country: HU (occurrence: HU)
  Receive Date: 20230508
  Receipt Date: 20230508
  Transmission Date: 20230721
  Serious: No
  Sender: FDA-Public Use
  Company Number: HU-ALKEM LABORATORIES LIMITED-HU-ALKEM-2023-01883

PATIENT
  Sex: Female

DRUGS (2)
  1. CHOLESTYRAMINE [Suspect]
     Active Substance: CHOLESTYRAMINE
     Indication: Cholangitis sclerosing
     Dosage: 8 GRAM/DAY, QD
     Route: 048
  2. CHOLESTYRAMINE [Suspect]
     Active Substance: CHOLESTYRAMINE
     Indication: Cholestasis

REACTIONS (1)
  - Exposure during pregnancy [Unknown]
